FAERS Safety Report 10919771 (Version 2)
Quarter: 2015Q2

REPORT INFORMATION
  Report Type: Spontaneous
  Country: US (occurrence: US)
  Receive Date: 20150317
  Receipt Date: 20150526
  Transmission Date: 20150821
  Serious: No
  Sender: FDA-Public Use
  Company Number: US-JNJFOC-20130605166

PATIENT
  Age: 46 Year
  Sex: Male

DRUGS (3)
  1. EMTRICITABINE W/TENOFOVIR DISOPROXIL FUMARATE [Concomitant]
     Active Substance: EMTRICITABINE\TENOFOVIR DISOPROXIL
     Route: 065
     Dates: end: 20130506
  2. NORVIR [Concomitant]
     Active Substance: RITONAVIR
     Route: 065
     Dates: end: 20130506
  3. PREZISTA [Suspect]
     Active Substance: DARUNAVIR ETHANOLATE
     Indication: HIV INFECTION
     Route: 048
     Dates: end: 20130506

REACTIONS (4)
  - Overdose [Recovered/Resolved]
  - Dizziness [Recovered/Resolved]
  - Viral load increased [Unknown]
  - Extra dose administered [Recovered/Resolved]

NARRATIVE: CASE EVENT DATE: 201305
